FAERS Safety Report 25098258 (Version 1)
Quarter: 2025Q1

REPORT INFORMATION
  Report Type: Report from Study
  Country: CA (occurrence: CA)
  Receive Date: 20250320
  Receipt Date: 20250320
  Transmission Date: 20250408
  Serious: Yes (Other)
  Sender: JOHNSON AND JOHNSON
  Company Number: CA-JNJFOC-20250151819

PATIENT
  Age: 15 Year
  Sex: Female

DRUGS (3)
  1. REMICADE [Suspect]
     Active Substance: INFLIXIMAB
     Indication: Crohn^s disease
     Route: 041
     Dates: start: 20240808
  2. REMICADE [Suspect]
     Active Substance: INFLIXIMAB
     Route: 041
  3. BIOTIN [Concomitant]
     Active Substance: BIOTIN
     Indication: Product used for unknown indication

REACTIONS (5)
  - Pyoderma gangrenosum [Unknown]
  - Skin infection [Not Recovered/Not Resolved]
  - Respiratory tract congestion [Unknown]
  - Mineral supplementation [Unknown]
  - Psoriasis [Not Recovered/Not Resolved]

NARRATIVE: CASE EVENT DATE: 20250101
